FAERS Safety Report 14326956 (Version 7)
Quarter: 2018Q4

REPORT INFORMATION
  Report Type: Spontaneous
  Country: US (occurrence: US)
  Receive Date: 20171227
  Receipt Date: 20181127
  Transmission Date: 20190204
  Serious: Yes (Hospitalization, Other)
  Sender: FDA-Public Use
  Company Number: US-BRISTOL-MYERS SQUIBB COMPANY-BMS-2017-118168

PATIENT
  Age: 57 Year
  Sex: Female

DRUGS (1)
  1. ORENCIA [Suspect]
     Active Substance: ABATACEPT
     Indication: RHEUMATOID ARTHRITIS
     Dosage: 125 MG, QWK
     Route: 058
     Dates: start: 201511

REACTIONS (6)
  - Influenza [Unknown]
  - Back disorder [Unknown]
  - Dermatitis contact [Unknown]
  - Hospitalisation [Unknown]
  - Drug ineffective [Unknown]
  - Tooth disorder [Unknown]

NARRATIVE: CASE EVENT DATE: 20180512
